FAERS Safety Report 8795608 (Version 1)
Quarter: 2012Q4

REPORT INFORMATION
  Report Type: 
  Country: JP (occurrence: JP)
  Receive Date: 20120917
  Receipt Date: 20120917
  Transmission Date: 20130627
  Serious: Yes (Hospitalization)
  Sender: FDA-Public Use
  Company Number: JP-ROCHE-1128462

PATIENT
  Age: 60 Year
  Sex: Male

DRUGS (3)
  1. HERCEPTIN [Suspect]
     Indication: GASTRIC CANCER
     Dosage: Dosage is uncertain.
     Route: 041
  2. PACLITAXEL [Concomitant]
     Indication: GASTRIC CANCER
     Dosage: Dosage is uncertain.
     Route: 041
  3. IRINOTECAN HYDROCHLORIDE [Concomitant]
     Indication: GASTRIC CANCER
     Dosage: Dosage is uncertain.
     Route: 041

REACTIONS (1)
  - Sick sinus syndrome [Not Recovered/Not Resolved]
